FAERS Safety Report 15791346 (Version 2)
Quarter: 2019Q1

REPORT INFORMATION
  Report Type: Spontaneous
  Country: US (occurrence: US)
  Receive Date: 20190104
  Receipt Date: 20190124
  Transmission Date: 20190417
  Serious: Yes (Other)
  Sender: FDA-Public Use
  Company Number: US-ACTELION-A-NJ2019-184392

PATIENT
  Age: 49 Year
  Sex: Female
  Weight: 80.73 kg

DRUGS (1)
  1. UPTRAVI [Suspect]
     Active Substance: SELEXIPAG
     Indication: PULMONARY HYPERTENSION
     Dosage: 200 MCG, BID
     Route: 048
     Dates: start: 20181224, end: 201812

REACTIONS (14)
  - Anxiety [Unknown]
  - Frustration tolerance decreased [Unknown]
  - Decreased activity [Unknown]
  - Headache [Unknown]
  - Burning sensation [Unknown]
  - Vomiting [Unknown]
  - Back pain [Unknown]
  - Nausea [Unknown]
  - Insomnia [Unknown]
  - Head discomfort [Unknown]
  - Hepatic cirrhosis [Unknown]
  - Restlessness [Unknown]
  - Myalgia [Unknown]
  - Depressed mood [Unknown]

NARRATIVE: CASE EVENT DATE: 20181224
